FAERS Safety Report 17555579 (Version 1)
Quarter: 2020Q1

REPORT INFORMATION
  Report Type: Spontaneous
  Country: US (occurrence: US)
  Receive Date: 20200310
  Receipt Date: 20200310
  Transmission Date: 20200409
  Serious: No
  Sender: FDA-Public Use
  Company Number: None

PATIENT

DRUGS (2)
  1. DULOXETINE 60MG [Suspect]
     Active Substance: DULOXETINE
  2. DULOXETINE 20MG [Suspect]
     Active Substance: DULOXETINE

REACTIONS (10)
  - Product dispensing error [None]
  - Withdrawal syndrome [None]
  - Palpitations [None]
  - Insomnia [None]
  - Dizziness [None]
  - Tremor [None]
  - Anxiety [None]
  - Concussion [None]
  - Vertigo [None]
  - Incorrect dose administered [None]
